FAERS Safety Report 9708752 (Version 1)
Quarter: 2013Q4

REPORT INFORMATION
  Report Type: Spontaneous
  Country: GB (occurrence: GB)
  Receive Date: 20131125
  Receipt Date: 20131125
  Transmission Date: 20140711
  Serious: Yes (Other)
  Sender: FDA-Public Use
  Company Number: GB-GLAXOSMITHKLINE-B0945928A

PATIENT
  Sex: Male

DRUGS (5)
  1. PAZOPANIB [Suspect]
     Indication: RENAL CELL CARCINOMA
     Dosage: 800MG PER DAY
     Route: 065
     Dates: start: 201202
  2. DENOSUMAB [Concomitant]
     Route: 058
     Dates: start: 201202
  3. METOCLOPRAMIDE [Concomitant]
  4. HALOPERIDOL [Concomitant]
  5. ADCAL D3 [Concomitant]
     Dates: start: 201202

REACTIONS (10)
  - Nausea [Unknown]
  - Fatigue [Unknown]
  - Dysgeusia [Unknown]
  - Decreased appetite [Unknown]
  - Neck pain [Unknown]
  - Spinal compression fracture [Unknown]
  - Oral pain [Unknown]
  - Osteonecrosis of jaw [Unknown]
  - Pain [Recovering/Resolving]
  - Anaemia [Unknown]
